FAERS Safety Report 23162934 (Version 1)
Quarter: 2023Q4

REPORT INFORMATION
  Report Type: Spontaneous
  Country: US (occurrence: None)
  Receive Date: 20231109
  Receipt Date: 20231109
  Transmission Date: 20240109
  Serious: No
  Sender: FDA-Public Use
  Company Number: US-ROCHE-3174883

PATIENT
  Age: 31 Year
  Sex: Male

DRUGS (4)
  1. COTELLIC [Suspect]
     Active Substance: COBIMETINIB
     Indication: Malignant melanoma
     Route: 048
     Dates: start: 20220601
  2. COTELLIC [Suspect]
     Active Substance: COBIMETINIB
     Indication: Malignant melanoma
  3. ZELBORAF [Suspect]
     Active Substance: VEMURAFENIB
     Indication: Malignant melanoma
     Dosage: 4 TABLETS
     Route: 048
  4. ZELBORAF [Suspect]
     Active Substance: VEMURAFENIB
     Indication: Malignant melanoma
     Dosage: 3 TABLET
     Route: 048

REACTIONS (3)
  - Arthralgia [Unknown]
  - Swelling [Unknown]
  - Arthralgia [Unknown]
